FAERS Safety Report 24532641 (Version 1)
Quarter: 2024Q4

REPORT INFORMATION
  Report Type: Spontaneous
  Country: CN (occurrence: CN)
  Receive Date: 20241022
  Receipt Date: 20241022
  Transmission Date: 20250115
  Serious: Yes (Other)
  Sender: RANBAXY
  Company Number: CN-SUN PHARMACEUTICAL INDUSTRIES LTD-2024R1-474337

PATIENT
  Age: 56 Year
  Sex: Male

DRUGS (8)
  1. IRINOTECAN [Suspect]
     Active Substance: IRINOTECAN
     Indication: External ear neoplasm malignant
     Dosage: UNK
     Route: 065
     Dates: start: 202104, end: 202202
  2. IRINOTECAN [Suspect]
     Active Substance: IRINOTECAN
     Indication: Metastases to lung
  3. CAPECITABINE [Suspect]
     Active Substance: CAPECITABINE
     Indication: External ear neoplasm malignant
     Dosage: UNK
     Route: 065
     Dates: start: 202104, end: 202202
  4. CAPECITABINE [Suspect]
     Active Substance: CAPECITABINE
     Indication: Metastases to lung
  5. BEVACIZUMAB [Suspect]
     Active Substance: BEVACIZUMAB
     Indication: External ear neoplasm malignant
     Dosage: UNK
     Route: 065
     Dates: start: 202104, end: 202202
  6. BEVACIZUMAB [Suspect]
     Active Substance: BEVACIZUMAB
     Indication: Metastases to lung
  7. SINTILIMAB [Suspect]
     Active Substance: SINTILIMAB
     Indication: External ear neoplasm malignant
     Dosage: UNK
     Route: 065
     Dates: start: 202104, end: 202202
  8. SINTILIMAB [Suspect]
     Active Substance: SINTILIMAB
     Indication: Metastases to lung

REACTIONS (1)
  - Disease progression [Unknown]

NARRATIVE: CASE EVENT DATE: 20220401
